FAERS Safety Report 11683879 (Version 1)
Quarter: 2015Q4

REPORT INFORMATION
  Report Type: Spontaneous
  Country: US (occurrence: US)
  Receive Date: 20151029
  Receipt Date: 20151029
  Transmission Date: 20160304
  Serious: No
  Sender: FDA-Public Use
  Company Number: US-BIOMARINAP-US-2015-107840

PATIENT
  Sex: Male
  Weight: 22.5 kg

DRUGS (1)
  1. VIMIZIM [Suspect]
     Active Substance: ELOSULFASE ALFA
     Indication: MUCOPOLYSACCHARIDOSIS IV
     Dosage: UNK, QW
     Route: 042
     Dates: start: 20141001

REACTIONS (3)
  - Back pain [Not Recovered/Not Resolved]
  - Middle ear effusion [Unknown]
  - Cough [Not Recovered/Not Resolved]
